FAERS Safety Report 17483689 (Version 1)
Quarter: 2020Q1

REPORT INFORMATION
  Report Type: Spontaneous
  Country: US (occurrence: US)
  Receive Date: 20200301
  Receipt Date: 20200301
  Transmission Date: 20200409
  Serious: Yes (Disabling, Other)
  Sender: FDA-Public Use
  Company Number: None

PATIENT
  Age: 63 Year
  Sex: Female
  Weight: 67.5 kg

DRUGS (8)
  1. VITAMIN OMEGA [Concomitant]
  2. FISH OIL [Concomitant]
     Active Substance: FISH OIL
  3. BENADRYL [Concomitant]
     Active Substance: DIPHENHYDRAMINE HYDROCHLORIDE
  4. PROZAC [Concomitant]
     Active Substance: FLUOXETINE HYDROCHLORIDE
  5. PRAZOSIN. [Concomitant]
     Active Substance: PRAZOSIN
  6. EFFEXOR [Suspect]
     Active Substance: VENLAFAXINE HYDROCHLORIDE
     Indication: OBSESSIVE-COMPULSIVE DISORDER
     Dosage: ?          QUANTITY:1 TABLET(S);?
     Route: 048
  7. KLONOPIN [Suspect]
     Active Substance: CLONAZEPAM
  8. MELATONIN [Concomitant]
     Active Substance: MELATONIN

REACTIONS (10)
  - Post-traumatic stress disorder [None]
  - Drug withdrawal syndrome [None]
  - Nightmare [None]
  - Therapeutic product effect decreased [None]
  - Anhedonia [None]
  - Drug dependence [None]
  - Panic attack [None]
  - Neurotoxicity [None]
  - Drug ineffective [None]
  - Suicidal ideation [None]

NARRATIVE: CASE EVENT DATE: 20120815
